FAERS Safety Report 16053201 (Version 1)
Quarter: 2019Q1

REPORT INFORMATION
  Report Type: Spontaneous
  Country: BE (occurrence: BE)
  Receive Date: 20190308
  Receipt Date: 20190308
  Transmission Date: 20190418
  Serious: Yes (Other)
  Sender: FDA-Public Use
  Company Number: BE-MYLANLABS-2019M1021061

PATIENT
  Sex: Male

DRUGS (3)
  1. PRAZEPAM [Concomitant]
     Active Substance: PRAZEPAM
     Dosage: UNK
     Route: 048
  2. PAROXETINE. [Concomitant]
     Active Substance: PAROXETINE
     Dosage: UNK
     Route: 048
  3. OLANZAPINE. [Suspect]
     Active Substance: OLANZAPINE
     Indication: PRODUCT USED FOR UNKNOWN INDICATION
     Dosage: UNK
     Route: 048

REACTIONS (1)
  - Agitation [Unknown]
